FAERS Safety Report 15851850 (Version 1)
Quarter: 2019Q1

REPORT INFORMATION
  Report Type: Spontaneous
  Country: US (occurrence: US)
  Receive Date: 20190122
  Receipt Date: 20190122
  Transmission Date: 20190417
  Serious: No
  Sender: FDA-Public Use
  Company Number: US-ASTRAZENECA-2019SE07486

PATIENT
  Sex: Male
  Weight: 71.2 kg

DRUGS (3)
  1. SYMBICORT [Suspect]
     Active Substance: BUDESONIDE\FORMOTEROL FUMARATE DIHYDRATE
     Indication: PRODUCTIVE COUGH
     Dosage: 80/4.5 MCG, TWO PUFFS DAILY
     Route: 055
     Dates: end: 20190111
  2. SPIRIVA [Concomitant]
     Active Substance: TIOTROPIUM BROMIDE MONOHYDRATE
     Indication: ADJUVANT THERAPY
     Dosage: 2 PUFFS A DAY
     Route: 055
  3. VENTOLIN [Concomitant]
     Active Substance: ALBUTEROL SULFATE
     Indication: INHALATION THERAPY
     Dosage: EVERY 6 HOURS, AS NEEDED
     Route: 055

REACTIONS (8)
  - Bronchitis [Unknown]
  - Fatigue [Unknown]
  - Product use issue [Unknown]
  - Asthma [Unknown]
  - Product use in unapproved indication [Unknown]
  - Drug ineffective [Unknown]
  - Intentional product misuse [Unknown]
  - Off label use [Unknown]
